FAERS Safety Report 13496151 (Version 4)
Quarter: 2017Q2

REPORT INFORMATION
  Report Type: Report from Study
  Country: IT (occurrence: IT)
  Receive Date: 20170428
  Receipt Date: 20170613
  Transmission Date: 20170830
  Serious: Yes (Hospitalization)
  Sender: FDA-Public Use
  Company Number: IT-TEVA-763281ACC

PATIENT
  Age: 67 Year
  Sex: Male
  Weight: 131 kg

DRUGS (16)
  1. RANITIDINE. [Concomitant]
     Active Substance: RANITIDINE
  2. CLEXANE [Suspect]
     Active Substance: ENOXAPARIN SODIUM
     Indication: DEEP VEIN THROMBOSIS
     Dosage: 16000 IU (INTERNATIONAL UNIT) DAILY;
     Dates: start: 20160401, end: 20160418
  3. MABTHERA [Concomitant]
     Active Substance: RITUXIMAB
     Indication: CHEMOTHERAPY
     Dosage: 1400 MILLIGRAM DAILY;
     Route: 058
     Dates: start: 20160220, end: 20160525
  4. CLEXANE [Suspect]
     Active Substance: ENOXAPARIN SODIUM
     Dates: start: 20160201, end: 20160427
  5. MYOCET [Concomitant]
     Active Substance: DOXORUBICIN
     Indication: B-CELL LYMPHOMA
     Route: 042
     Dates: start: 20160220, end: 20160525
  6. VINCRISTINE PFIZER ITALIA [Concomitant]
     Indication: B-CELL LYMPHOMA
     Dosage: 2 MILLIGRAM DAILY;
     Route: 042
     Dates: start: 20160220, end: 20160525
  7. ENDOXAN BAXTER [Concomitant]
     Active Substance: CYCLOPHOSPHAMIDE
     Indication: B-CELL LYMPHOMA
  8. SEQUACOR [Concomitant]
     Active Substance: BISOPROLOL
     Indication: HYPERTENSION
     Dosage: 2.5 MILLIGRAM DAILY;
     Route: 048
  9. IMIPENEM [Concomitant]
     Active Substance: IMIPENEM
  10. ALMARYTM [Concomitant]
     Active Substance: FLECAINIDE ACETATE
  11. LONQUEX [Suspect]
     Active Substance: LIPEGFILGRASTIM
     Indication: PROPHYLAXIS
     Dosage: 6 MILLIGRAM DAILY;
     Route: 058
     Dates: start: 20160318, end: 20160408
  12. DELTACORTENE [Concomitant]
     Active Substance: PREDNISONE
     Indication: CHEMOTHERAPY
     Route: 048
     Dates: start: 20160220, end: 20160602
  13. METHOTREXATE. [Suspect]
     Active Substance: METHOTREXATE
     Indication: CHEMOTHERAPY
     Dosage: 6600 MILLIGRAM DAILY;
     Route: 042
     Dates: start: 20160326, end: 20160415
  14. CLEXANE [Suspect]
     Active Substance: ENOXAPARIN SODIUM
     Indication: THROMBOSIS PROPHYLAXIS
     Dosage: 8000 IU (INTERNATIONAL UNIT) DAILY;
     Route: 058
     Dates: start: 20160419, end: 20160427
  15. APROVEL [Concomitant]
     Active Substance: IRBESARTAN
     Indication: HYPERTENSION
     Dosage: 300 MILLIGRAM DAILY;
     Route: 048
  16. CONTRAMAL [Concomitant]
     Active Substance: TRAMADOL HYDROCHLORIDE

REACTIONS (1)
  - Renal haematoma [Recovered/Resolved with Sequelae]

NARRATIVE: CASE EVENT DATE: 20160422
